FAERS Safety Report 17744986 (Version 4)
Quarter: 2021Q1

REPORT INFORMATION
  Report Type: Spontaneous
  Country: CL (occurrence: CL)
  Receive Date: 20200505
  Receipt Date: 20210205
  Transmission Date: 20210419
  Serious: Yes (Death, Hospitalization, Other)
  Sender: FDA-Public Use
  Company Number: CL-SA-2018SA075969

PATIENT
  Age: 1 Year
  Sex: Male

DRUGS (4)
  1. ALDURAZYME [Suspect]
     Active Substance: LARONIDASE
     Dosage: 2 DF, QW
     Route: 041
  2. PARACETAMOL [Concomitant]
     Active Substance: ACETAMINOPHEN
     Indication: PREMEDICATION
     Dosage: 120 MG
     Route: 048
  3. CHLORPHENAMINE [Concomitant]
     Active Substance: CHLORPHENIRAMINE MALEATE
     Indication: PREMEDICATION
     Dosage: 2 MG
     Route: 048
  4. ALDURAZYME [Suspect]
     Active Substance: LARONIDASE
     Indication: MUCOPOLYSACCHARIDOSIS I
     Dosage: 2 DF, QW (5.8MG)
     Route: 041
     Dates: start: 20171227, end: 201809

REACTIONS (7)
  - Sleep apnoea syndrome [Fatal]
  - Oropharyngeal pain [Unknown]
  - Pneumonia [Recovering/Resolving]
  - Unevaluable event [Unknown]
  - Clostridium difficile infection [Unknown]
  - Cough [Unknown]
  - Pyrexia [Unknown]

NARRATIVE: CASE EVENT DATE: 20210118
